FAERS Safety Report 9405531 (Version 1)
Quarter: 2013Q3

REPORT INFORMATION
  Report Type: Spontaneous
  Country: AU (occurrence: AU)
  Receive Date: 20130717
  Receipt Date: 20130717
  Transmission Date: 20140515
  Serious: Yes (Death)
  Sender: FDA-Public Use
  Company Number: AU-BAXTER-2013BAX027065

PATIENT
  Age: 72 Year
  Sex: Male

DRUGS (2)
  1. DIANEAL 1MMOL CALCIUM IN 1.5% GLUCOSE PERITONEAL DIALYSIS SOLUTION STA [Suspect]
     Indication: PERITONEAL DIALYSIS
     Route: 033
  2. DIANEAL 1MMOL CALCIUM IN 2.5% GLUCOSE PERITONEAL DIALYSIS SOLUTION SIN [Suspect]
     Indication: PERITONEAL DIALYSIS
     Route: 033

REACTIONS (1)
  - Death [Fatal]
